FAERS Safety Report 4550576-9 (Version None)
Quarter: 2005Q1

REPORT INFORMATION
  Report Type: 
  Country: None (occurrence: None)
  Receive Date: 20050110
  Receipt Date: 20041230
  Transmission Date: 20050727
  Serious: Yes (Other)
  Sender: FDA-Public Use
  Company Number: 2004-12-1358

PATIENT
  Age: 56 Year
  Sex: Male

DRUGS (2)
  1. CLARITIN-D [Suspect]
     Indication: NASAL CONGESTION
     Dosage: 1 TAB PRN ORAL
     Route: 048
     Dates: start: 20041001, end: 20041214
  2. . [Concomitant]

REACTIONS (1)
  - CONVULSION [None]
